FAERS Safety Report 7013125-1 (Version None)
Quarter: 2010Q3

REPORT INFORMATION
  Report Type: 
  Country: None (occurrence: None)
  Receive Date: 20100924
  Receipt Date: 20100916
  Transmission Date: 20110219
  Serious: Yes (Hospitalization, Other)
  Sender: FDA-Public Use
  Company Number: US-JNJFOC-20100606779

PATIENT
  Age: 17 Year
  Sex: Female

DRUGS (3)
  1. CONCERTA [Suspect]
     Indication: ATTENTION DEFICIT/HYPERACTIVITY DISORDER
     Route: 048
  2. TRAZODONE HCL [Suspect]
     Indication: PRODUCT USED FOR UNKNOWN INDICATION
     Dosage: 10 PILLS
     Route: 048
  3. PROZAC [Suspect]
     Indication: DEPRESSION
     Route: 048

REACTIONS (2)
  - IMPULSIVE BEHAVIOUR [None]
  - SUICIDE ATTEMPT [None]
